FAERS Safety Report 8721726 (Version 3)
Quarter: 2013Q4

REPORT INFORMATION
  Report Type: Spontaneous
  Country: US (occurrence: US)
  Receive Date: 20120814
  Receipt Date: 20131213
  Transmission Date: 20140711
  Serious: No
  Sender: FDA-Public Use
  Company Number: US-PFIZER INC-2012193077

PATIENT
  Age: 73 Year
  Sex: Female
  Weight: 86.2 kg

DRUGS (5)
  1. AMLODIPINE BESILATE [Suspect]
     Indication: HYPERTENSION
     Dosage: 10 MG, DAILY
  2. VISTARIL [Suspect]
     Indication: PRURITUS
     Dosage: 25 MG, 2 TO 3 TIMES A DAY
     Dates: start: 2008
  3. VISTARIL [Suspect]
     Indication: RASH
  4. VISTARIL [Suspect]
     Indication: PRURITUS
  5. PREMARIN [Suspect]
     Indication: HOT FLUSH
     Dosage: 0.625 MG, 1X/DAY

REACTIONS (10)
  - Malaise [Not Recovered/Not Resolved]
  - Asthenia [Unknown]
  - Weight decreased [Unknown]
  - Drug ineffective [Unknown]
  - Red blood cell count decreased [Unknown]
  - Haematocrit decreased [Unknown]
  - Haemoglobin decreased [Unknown]
  - Blood sodium decreased [Unknown]
  - Blood glucose increased [Unknown]
  - Blood creatinine increased [Unknown]
